FAERS Safety Report 10682518 (Version 1)
Quarter: 2014Q4

REPORT INFORMATION
  Report Type: Spontaneous
  Country: US (occurrence: None)
  Receive Date: 20141229
  Receipt Date: 20141229
  Transmission Date: 20150529
  Serious: Yes (Hospitalization)
  Sender: FDA-Public Use
  Company Number: None

PATIENT
  Age: 69 Year
  Sex: Male

DRUGS (1)
  1. CHANTIX [Suspect]
     Active Substance: VARENICLINE TARTRATE
     Indication: SMOKING CESSATION THERAPY
     Dosage: 0.5MG/ 1/2 TABLET OF 1MG  TWICE DAILY TAKEN BY MOUTH
     Route: 048
     Dates: start: 20140922, end: 20140922

REACTIONS (12)
  - Dysarthria [None]
  - Asthenia [None]
  - Agitation [None]
  - Insomnia [None]
  - Heart rate increased [None]
  - Hallucination, visual [None]
  - Aggression [None]
  - Respiratory rate increased [None]
  - Abnormal dreams [None]
  - Musculoskeletal disorder [None]
  - Confusional state [None]
  - Restlessness [None]

NARRATIVE: CASE EVENT DATE: 20140922
